FAERS Safety Report 18402074 (Version 1)
Quarter: 2020Q4

REPORT INFORMATION
  Report Type: Report from Study
  Country: ZA (occurrence: ZA)
  Receive Date: 20201020
  Receipt Date: 20201020
  Transmission Date: 20210114
  Serious: Yes (Hospitalization)
  Sender: FDA-Public Use
  Company Number: ZA-REGENERON PHARMACEUTICALS, INC.-2020-72980

PATIENT

DRUGS (1)
  1. EYLEA [Suspect]
     Active Substance: AFLIBERCEPT
     Indication: DIABETIC RETINAL OEDEMA
     Dosage: 2 DF. TOTAL DOSE OF EYLEA PRIOR TO THE EVENT IS 2. DATE OF LAST DOSE OF EYLEA PRIOR TO THE EVENT IS
     Route: 031
     Dates: start: 20200626, end: 20200828

REACTIONS (2)
  - Hospitalisation [Unknown]
  - Diabetic complication [Unknown]
